FAERS Safety Report 8565011-3 (Version None)
Quarter: 2012Q3

REPORT INFORMATION
  Report Type: 
  Country: None (occurrence: None)
  Receive Date: 20120803
  Receipt Date: 20120731
  Transmission Date: 20120928
  Serious: Yes (Other)
  Sender: FDA-Public Use
  Company Number: US-PFIZER INC-2012186110

PATIENT
  Sex: Female
  Weight: 73 kg

DRUGS (19)
  1. PREMARIN [Suspect]
     Indication: VULVOVAGINAL DRYNESS
     Dosage: UNK, 3X/WEEK
     Route: 067
     Dates: start: 20100101
  2. LOSARTAN [Concomitant]
     Indication: HYPERTENSION
     Dosage: 100 MG, UNK
  3. VITAMIN E [Concomitant]
     Dosage: 400 MG, UNK
  4. GLUCOSAMINE [Concomitant]
     Dosage: 2000 (UNIT UNKNOWN)
  5. VESICARE [Concomitant]
     Dosage: 10 MG, UNK
  6. MOBIC [Concomitant]
     Indication: ARTHRITIS
     Dosage: UNK, AS NEEDED
  7. PREMARIN [Suspect]
     Indication: ANTIFUNGAL PROPHYLAXIS
  8. ASCORBIC ACID [Concomitant]
     Dosage: 500 MG, UNK
  9. VITAMIN D [Concomitant]
     Dosage: 1000 (UNIT UNKNOWN)
  10. GELATIN [Concomitant]
     Dosage: 1300 MG, UNK
  11. VERAPAMIL EXTENDED-RELEASE [Concomitant]
     Indication: HYPERTENSION
     Dosage: 240 MG, UNK
  12. ATORVASTATIN [Concomitant]
     Indication: BLOOD CHOLESTEROL INCREASED
     Dosage: 40 MG, UNK
  13. NORFLEX [Concomitant]
     Indication: MYALGIA
     Dosage: UNK, AS NEEDED
  14. PRILOSEC [Concomitant]
     Dosage: 20 MG, UNK
  15. INDAPAMIDE [Concomitant]
     Indication: HYPERTENSION
     Dosage: 1.25 MG, UNK
  16. CHLORTHALIDONE [Concomitant]
     Indication: HYPERTENSION
     Dosage: 25 MG, UNK
  17. LOVAZA [Concomitant]
     Dosage: 1000 (UNIT UNKNOWN)
  18. CALCIUM CARBONATE [Concomitant]
     Dosage: UNK
  19. MULTI-VITAMINS [Concomitant]
     Dosage: UNK

REACTIONS (4)
  - RASH [None]
  - INCORRECT DOSE ADMINISTERED [None]
  - VAGINAL HAEMORRHAGE [None]
  - BODY HEIGHT DECREASED [None]
